FAERS Safety Report 7870145-2 (Version None)
Quarter: 2011Q4

REPORT INFORMATION
  Report Type: 
  Country: None (occurrence: None)
  Receive Date: 20111028
  Receipt Date: 20110114
  Transmission Date: 20120403
  Serious: No
  Sender: FDA-Public Use
  Company Number: US-AMGEN-USASP2011002570

PATIENT
  Age: 44 Year

DRUGS (11)
  1. FOLIC ACID [Concomitant]
     Dosage: 1 MG, UNK
  2. TYLENOL (CAPLET) [Concomitant]
  3. ENBREL [Suspect]
     Indication: PRODUCT USED FOR UNKNOWN INDICATION
     Dosage: 50 MG, QWK
  4. IBUPROFEN (ADVIL) [Concomitant]
     Dosage: 200 MG, UNK
  5. PAXIL [Concomitant]
     Dosage: 40 MG, UNK
  6. TIZANIDINE HCL [Concomitant]
     Dosage: 4 MG, UNK
  7. GEODON [Concomitant]
     Dosage: 80 MG, UNK
  8. METHOTREXATE [Concomitant]
     Dosage: 2.5 MG, UNK
  9. SULFASALAZINE [Concomitant]
     Dosage: 00 MG, UNK
  10. PREDNISONE [Concomitant]
     Dosage: UNK UNK, TID
  11. TRAZODONE HYDROCHLORIDE [Concomitant]
     Dosage: 100 MG, UNK

REACTIONS (2)
  - RASH [None]
  - SWELLING FACE [None]
